FAERS Safety Report 4563974-4 (Version None)
Quarter: 2005Q1

REPORT INFORMATION
  Report Type: 
  Country: None (occurrence: None)
  Receive Date: 20050127
  Receipt Date: 20050112
  Transmission Date: 20050727
  Serious: Yes (Hospitalization, Other)
  Sender: FDA-Public Use
  Company Number: 2005S1000137

PATIENT
  Age: 85 Year
  Sex: Female

DRUGS (7)
  1. LISINOPRIL [Suspect]
     Indication: HYPERTENSION
     Dosage: 10MG, QD, ORAL
     Route: 048
     Dates: end: 20050106
  2. ALENDRONATE SODIUM [Concomitant]
  3. FUROSEMIDE [Concomitant]
  4. REPAGLINIDE [Concomitant]
  5. METHYLPREDNISOLONE [Concomitant]
  6. METOPROLOL SUCCINATE [Concomitant]
  7. DIGOXIN [Concomitant]

REACTIONS (4)
  - ARRHYTHMIA [None]
  - DIZZINESS [None]
  - DRY MOUTH [None]
  - HEART RATE DECREASED [None]
